FAERS Safety Report 5221684-4 (Version None)
Quarter: 2007Q1

REPORT INFORMATION
  Report Type: 
  Country: None (occurrence: None)
  Receive Date: 20070126
  Receipt Date: 20070126
  Transmission Date: 20070707
  Serious: Yes (Hospitalization)
  Sender: FDA-Public Use
  Company Number: None

PATIENT
  Age: 80 Year
  Sex: Male
  Weight: 105 kg

DRUGS (1)
  1. MINOXIDIL [Suspect]
     Dosage: 5MG  DAILY  PO
     Route: 048
     Dates: start: 20051213, end: 20061003

REACTIONS (1)
  - PERICARDIAL EFFUSION [None]
